FAERS Safety Report 8862369 (Version 1)
Quarter: 2012Q4

REPORT INFORMATION
  Report Type: 
  Country: US (occurrence: US)
  Receive Date: 20121026
  Receipt Date: 20121026
  Transmission Date: 20130627
  Serious: Yes (Death, Other)
  Sender: FDA-Public Use
  Company Number: US-TEVA-366825USA

PATIENT
  Age: 70 Year
  Sex: Male

DRUGS (4)
  1. TREANDA [Suspect]
     Indication: CHRONIC LYMPHOCYTIC LEUKAEMIA
     Dates: start: 2011
  2. TREANDA [Suspect]
     Indication: B-CELL SMALL LYMPHOCYTIC LYMPHOMA
  3. RITUXAN [Suspect]
     Indication: CHRONIC LYMPHOCYTIC LEUKAEMIA
     Dates: start: 2011
  4. RITUXAN [Suspect]
     Indication: B-CELL SMALL LYMPHOCYTIC LYMPHOMA

REACTIONS (2)
  - Acute myeloid leukaemia [Recovered/Resolved]
  - Death [Fatal]
